FAERS Safety Report 7439524-1 (Version None)
Quarter: 2011Q2

REPORT INFORMATION
  Report Type: 
  Country: None (occurrence: None)
  Receive Date: 20110427
  Receipt Date: 20110416
  Transmission Date: 20111010
  Serious: Yes (Other)
  Sender: FDA-Public Use
  Company Number: SA-BRISTOL-MYERS SQUIBB COMPANY-15683741

PATIENT
  Age: 20 Year
  Sex: Female

DRUGS (4)
  1. GLYBURIDE AND METFORMIN HYDROCHLORIDE [Suspect]
     Dosage: METFORMINE 500 UNIT NOT SPECIFIED, 1DF = 6 TAB ONCE
     Route: 048
     Dates: start: 20110415, end: 20110415
  2. APROVEL TABS 150 MG [Suspect]
     Dosage: ONCE,12 TABS
     Route: 048
     Dates: start: 20110415, end: 20110415
  3. ACETYLSALICYLIC ACID SRT [Suspect]
     Dosage: ASA 81MG.ONCE 20 TABS
     Route: 048
     Dates: start: 20110415, end: 20110415
  4. NEUROBION [Suspect]
     Dosage: 1 DF = 6 TAB ONCE
     Route: 048
     Dates: start: 20110415, end: 20110415

REACTIONS (2)
  - SUICIDE ATTEMPT [None]
  - HYPOGLYCAEMIA [None]
